FAERS Safety Report 23437137 (Version 1)
Quarter: 2024Q1

REPORT INFORMATION
  Report Type: Spontaneous
  Country: US (occurrence: None)
  Receive Date: 20240123
  Receipt Date: 20240123
  Transmission Date: 20240410
  Serious: Yes (Other)
  Sender: FDA-Public Use
  Company Number: None

PATIENT
  Age: 53 Year
  Sex: Male

DRUGS (6)
  1. AMBRISENTAN [Suspect]
     Active Substance: AMBRISENTAN
     Indication: Pulmonary arterial hypertension
     Dosage: FREQUENCY : DAILY;?
     Route: 048
     Dates: start: 20230616
  2. SILDENAFIL [Concomitant]
     Active Substance: SILDENAFIL
  3. OMEPRAZOLE [Concomitant]
     Active Substance: OMEPRAZOLE
  4. OXYBUTYNIN [Concomitant]
     Active Substance: OXYBUTYNIN\OXYBUTYNIN CHLORIDE
  5. BUMETANIDE [Concomitant]
     Active Substance: BUMETANIDE
  6. VITAMINS [Concomitant]
     Active Substance: VITAMINS

REACTIONS (1)
  - Iron deficiency anaemia [None]

NARRATIVE: CASE EVENT DATE: 20240113
